FAERS Safety Report 18417484 (Version 1)
Quarter: 2020Q4

REPORT INFORMATION
  Report Type: Spontaneous
  Country: US (occurrence: US)
  Receive Date: 20201022
  Receipt Date: 20201022
  Transmission Date: 20210114
  Serious: No
  Sender: FDA-Public Use
  Company Number: US-SEATTLE GENETICS-2020SGN03867

PATIENT
  Age: 54 Year
  Sex: Female

DRUGS (1)
  1. TUKYSA [Suspect]
     Active Substance: TUCATINIB
     Indication: BREAST CANCER
     Dosage: 150 MG, UNK
     Route: 048
     Dates: start: 20200822

REACTIONS (5)
  - Nausea [Unknown]
  - Abdominal discomfort [Unknown]
  - Blood count abnormal [Unknown]
  - Disease progression [Unknown]
  - Diarrhoea [Unknown]

NARRATIVE: CASE EVENT DATE: 20200822
